FAERS Safety Report 4408534-0 (Version None)
Quarter: 2004Q3

REPORT INFORMATION
  Report Type: 
  Country: None (occurrence: None)
  Receive Date: 20040726
  Receipt Date: 20040623
  Transmission Date: 20050211
  Serious: Yes (Hospitalization)
  Sender: FDA-Public Use
  Company Number: 2004UW13102

PATIENT
  Age: 52 Year
  Sex: Male

DRUGS (3)
  1. CRESTOR [Suspect]
     Dosage: 10 MG
     Dates: start: 20040426
  2. DIOVAN HCT [Suspect]
     Dosage: 160/12.5
  3. LIPITOR [Concomitant]

REACTIONS (2)
  - MYOSITIS [None]
  - RENAL FAILURE [None]
